FAERS Safety Report 5943757-0 (Version None)
Quarter: 2008Q4

REPORT INFORMATION
  Report Type: 
  Country: None (occurrence: None)
  Receive Date: 20081106
  Receipt Date: 20081028
  Transmission Date: 20090506
  Serious: Yes (Other)
  Sender: FDA-Public Use
  Company Number: DE-JNJFOC-20080903681

PATIENT
  Age: 50 Year
  Sex: Female
  Weight: 97 kg

DRUGS (4)
  1. DOXORUBICIN HCL [Suspect]
     Indication: BREAST CANCER METASTATIC
     Route: 042
  2. NOVALGIN [Concomitant]
     Route: 065
  3. TRANSTEC [Concomitant]
     Route: 065
  4. OXCARBAZEPIN [Concomitant]
     Route: 065

REACTIONS (1)
  - ACUTE HEPATIC FAILURE [None]
